FAERS Safety Report 6898887-6 (Version None)
Quarter: 2010Q3

REPORT INFORMATION
  Report Type: 
  Country: None (occurrence: None)
  Receive Date: 20100802
  Receipt Date: 20071220
  Transmission Date: 20110219
  Serious: No
  Sender: FDA-Public Use
  Company Number: US-PFIZER INC-2007108039

PATIENT
  Sex: Female

DRUGS (1)
  1. LYRICA [Suspect]
     Indication: PAIN

REACTIONS (5)
  - CONSTIPATION [None]
  - DRY THROAT [None]
  - HEADACHE [None]
  - METRORRHAGIA [None]
  - VISUAL IMPAIRMENT [None]
